FAERS Safety Report 4543271-3 (Version None)
Quarter: 2004Q4

REPORT INFORMATION
  Report Type: 
  Country: None (occurrence: None)
  Receive Date: 20041229
  Receipt Date: 20041221
  Transmission Date: 20050328
  Serious: Yes (Hospitalization)
  Sender: FDA-Public Use
  Company Number: J081-002-001829

PATIENT
  Age: 76 Year
  Sex: Male
  Weight: 41 kg

DRUGS (5)
  1. ARICEPT [Suspect]
     Indication: DEMENTIA ALZHEIMER'S TYPE
     Dosage: 3 MG, 1 IN 1 D, ORAL
     Route: 048
     Dates: start: 20041101, end: 20041114
  2. WARFARIN SODIUM [Suspect]
     Indication: ATRIAL FIBRILLATION
     Dosage: 1.5 MG, 1 IN 1 D, ORAL; 2MG 1 IN 1 D, ORAL; 1.5 MG, 1 IN 1 D, ORAL
     Route: 048
     Dates: start: 20040201, end: 20040101
  3. WARFARIN SODIUM [Suspect]
     Indication: ATRIAL FIBRILLATION
     Dosage: 1.5 MG, 1 IN 1 D, ORAL; 2MG 1 IN 1 D, ORAL; 1.5 MG, 1 IN 1 D, ORAL
     Route: 048
     Dates: start: 20040101, end: 20041029
  4. WARFARIN SODIUM [Suspect]
     Indication: ATRIAL FIBRILLATION
     Dosage: 1.5 MG, 1 IN 1 D, ORAL; 2MG 1 IN 1 D, ORAL; 1.5 MG, 1 IN 1 D, ORAL
     Route: 048
     Dates: start: 20041030, end: 20041114
  5. LANIRAPID (METILDIGOXIN) [Concomitant]

REACTIONS (6)
  - ANAEMIA [None]
  - GASTRIC ULCER [None]
  - GASTRIC ULCER HAEMORRHAGE [None]
  - HAEMORRHAGIC DIATHESIS [None]
  - INTERNATIONAL NORMALISED RATIO INCREASED [None]
  - MALAISE [None]
